FAERS Safety Report 7954644-0 (Version None)
Quarter: 2011Q4

REPORT INFORMATION
  Report Type: 
  Country: None (occurrence: None)
  Receive Date: 20111202
  Receipt Date: 20111128
  Transmission Date: 20120403
  Serious: Yes (Other)
  Sender: FDA-Public Use
  Company Number: PHHY2011NL93547

PATIENT
  Sex: Male

DRUGS (1)
  1. ZOMETA [Suspect]
     Indication: PROSTATE CANCER METASTATIC
     Dosage: 4 MG/5ML 1X PER 42 DAYS
     Dates: start: 20111012

REACTIONS (6)
  - FALL [None]
  - NECK PAIN [None]
  - INSOMNIA [None]
  - CHEST PAIN [None]
  - BACK PAIN [None]
  - ERYTHEMA [None]
